FAERS Safety Report 16273929 (Version 2)
Quarter: 2019Q2

REPORT INFORMATION
  Report Type: Spontaneous
  Country: US (occurrence: US)
  Receive Date: 20190506
  Receipt Date: 20190517
  Transmission Date: 20190711
  Serious: Yes (Life-Threatening, Hospitalization, Other)
  Sender: FDA-Public Use
  Company Number: US-LUPIN PHARMACEUTICALS INC.-2019-02739

PATIENT
  Age: 44 Year
  Sex: Female

DRUGS (8)
  1. CYCLOBENZAPRINE. [Concomitant]
     Active Substance: CYCLOBENZAPRINE
     Indication: PRODUCT USED FOR UNKNOWN INDICATION
     Dosage: 10 MILLIGRAM, TID (AS NEEDED)
     Route: 048
  2. DOCUSATE [Concomitant]
     Active Substance: DOCUSATE
     Indication: PRODUCT USED FOR UNKNOWN INDICATION
     Dosage: 100 MILLIGRAM, QD
     Route: 048
  3. OXYCODONE AND ACETAMINOPHEN [Concomitant]
     Active Substance: ACETAMINOPHEN\OXYCODONE HYDROCHLORIDE
     Indication: PRODUCT USED FOR UNKNOWN INDICATION
     Dosage: 5/325 MG, PRN (EVERY 4 HOURS)
     Route: 048
  4. HYDROCODONE BITARTRATE AND ACETAMINOPHEN [Concomitant]
     Active Substance: ACETAMINOPHEN\HYDROCODONE BITARTRATE
     Indication: PRODUCT USED FOR UNKNOWN INDICATION
     Dosage: 5/325 MG, PRN (EVERY 4 HOURS)
     Route: 048
  5. POLYETHYLENE GLYCOL [Concomitant]
     Active Substance: POLYETHYLENE GLYCOLS
     Indication: PRODUCT USED FOR UNKNOWN INDICATION
     Dosage: 17 GRAM, QD
     Route: 048
  6. GABAPENTIN. [Suspect]
     Active Substance: GABAPENTIN
     Indication: LUMBAR SPINAL STENOSIS
     Dosage: 300 MILLIGRAM, TID (EVERY 8-HOUR)
     Route: 048
  7. ONDANSETRON [Concomitant]
     Active Substance: ONDANSETRON
     Indication: PRODUCT USED FOR UNKNOWN INDICATION
     Dosage: 04 MILLIGRAM, PRN (EVERY 4 HOUR)
     Route: 048
  8. DIAZEPAM. [Concomitant]
     Active Substance: DIAZEPAM
     Indication: PRODUCT USED FOR UNKNOWN INDICATION
     Dosage: 05 MILLIGRAM, TID (AS NEEDED)
     Route: 048

REACTIONS (16)
  - Left ventricular hypertrophy [Recovered/Resolved]
  - Pulmonary hypertension [Recovered/Resolved]
  - Atrial enlargement [Recovered/Resolved]
  - Anxiety [Unknown]
  - Cardiomegaly [Recovered/Resolved]
  - Electrocardiogram T wave abnormal [Recovered/Resolved]
  - Mitral valve incompetence [Recovered/Resolved]
  - Sinus tachycardia [Recovered/Resolved]
  - Hypotension [Unknown]
  - Ventricular arrhythmia [Unknown]
  - Mitral valve disease [Recovered/Resolved]
  - Cardiomyopathy [Recovered/Resolved]
  - Ventricular dysfunction [Recovered/Resolved]
  - Cardiac failure [Recovered/Resolved]
  - Ventricular tachycardia [Not Recovered/Not Resolved]
  - Tricuspid valve disease [Recovered/Resolved]
